FAERS Safety Report 8560200-6 (Version None)
Quarter: 2012Q3

REPORT INFORMATION
  Report Type: 
  Country: None (occurrence: None)
  Receive Date: 20120802
  Receipt Date: 20120723
  Transmission Date: 20120928
  Serious: Yes (Death, Hospitalization, Other)
  Sender: FDA-Public Use
  Company Number: US-009507513-1207USA011301

PATIENT

DRUGS (11)
  1. NOVOLOG MIX 70/30 [Concomitant]
  2. IRON (UNSPECIFIED) [Concomitant]
  3. ZOCOR [Suspect]
     Dosage: 20 MG, UNK
     Route: 048
  4. LOPERAMIDE HCL [Concomitant]
  5. ACETAMINOPHEN AND CODEINE PHOSPHATE [Concomitant]
  6. PARAFFIN [Concomitant]
  7. DOMPERIDONE [Concomitant]
  8. FUROSEMIDE [Concomitant]
  9. CYCLOSPORINE [Concomitant]
  10. LEVOTHYROXINE SODIUM [Concomitant]
  11. ASPIRIN [Concomitant]

REACTIONS (3)
  - HYPERKALAEMIA [None]
  - RENAL TRANSPLANT [None]
  - RHABDOMYOLYSIS [None]
